FAERS Safety Report 10142448 (Version 1)
Quarter: 2014Q2

REPORT INFORMATION
  Report Type: Spontaneous
  Country: CA (occurrence: CA)
  Receive Date: 20140430
  Receipt Date: 20140430
  Transmission Date: 20141212
  Serious: Yes (Hospitalization)
  Sender: FDA-Public Use
  Company Number: CA-009507513-1404CAN014384

PATIENT
  Age: 75 Year
  Sex: Female

DRUGS (1)
  1. FOSAVANCE [Suspect]
     Dosage: 1 DOSAGE FORM, 1 EVERY 1 WEEK
     Route: 048

REACTIONS (2)
  - Fall [Not Recovered/Not Resolved]
  - Atypical femur fracture [Not Recovered/Not Resolved]
